FAERS Safety Report 5865264-6 (Version None)
Quarter: 2008Q3

REPORT INFORMATION
  Report Type: 
  Country: None (occurrence: None)
  Receive Date: 20080829
  Receipt Date: 20070822
  Transmission Date: 20090109
  Serious: No
  Sender: FDA-Public Use
  Company Number: A0674735A

PATIENT
  Age: 55 Year
  Sex: Male

DRUGS (3)
  1. BECONASE [Suspect]
     Indication: VASOMOTOR RHINITIS
     Dosage: 2SPR TWICE PER DAY
     Route: 045
     Dates: start: 20050101, end: 20070101
  2. DIAZEPAM [Concomitant]
  3. SERAX [Concomitant]

REACTIONS (1)
  - DRUG INEFFECTIVE [None]
